APPROVED DRUG PRODUCT: PROMETHAZINE HYDROCHLORIDE
Active Ingredient: PROMETHAZINE HYDROCHLORIDE
Strength: 12.5MG
Dosage Form/Route: SUPPOSITORY;RECTAL
Application: A040603 | Product #001
Applicant: SUN PHARMA CANADA INC
Approved: Oct 26, 2006 | RLD: No | RS: No | Type: DISCN